FAERS Safety Report 8406918-7 (Version None)
Quarter: 2012Q2

REPORT INFORMATION
  Report Type: 
  Country: None (occurrence: None)
  Receive Date: 20120604
  Receipt Date: 20120530
  Transmission Date: 20120825
  Serious: Yes (Life-Threatening)
  Sender: FDA-Public Use
  Company Number: GB-ASTRAZENECA-2012SE32158

PATIENT
  Age: 61 Year
  Sex: Male

DRUGS (1)
  1. ZOLADEX [Suspect]
     Indication: HYPERTENSION
     Route: 058
     Dates: start: 20120401

REACTIONS (5)
  - HYPOCALCAEMIA [None]
  - MYALGIA [None]
  - CARDIAC DISORDER [None]
  - PALPITATIONS [None]
  - LARYNGOSPASM [None]
